FAERS Safety Report 22283552 (Version 1)
Quarter: 2023Q2

REPORT INFORMATION
  Report Type: Spontaneous
  Country: US (occurrence: None)
  Receive Date: 20230503
  Receipt Date: 20230503
  Transmission Date: 20230721
  Serious: Yes (Hospitalization, Disabling, Other)
  Sender: FDA-Public Use
  Company Number: None

PATIENT
  Sex: 0

DRUGS (1)
  1. OXYCODONE HYDROCHLORIDE [Suspect]
     Active Substance: OXYCODONE HYDROCHLORIDE
     Indication: Pain
     Dosage: 2 TABLETS 3 TIMES A DAY ORAL
     Route: 048

REACTIONS (5)
  - Drug ineffective [None]
  - Migraine [None]
  - Nausea [None]
  - Rash [None]
  - Product substitution issue [None]

NARRATIVE: CASE EVENT DATE: 20230309
